FAERS Safety Report 12706952 (Version 2)
Quarter: 2016Q4

REPORT INFORMATION
  Report Type: Report from Study
  Country: BR (occurrence: BR)
  Receive Date: 20160901
  Receipt Date: 20161010
  Transmission Date: 20170207
  Serious: Yes (Hospitalization)
  Sender: FDA-Public Use
  Company Number: ALCN2016BR006022

PATIENT
  Age: 86 Year
  Sex: Male
  Weight: 64 kg

DRUGS (3)
  1. LUTEIN [Concomitant]
     Active Substance: LUTEIN
     Indication: MACULAR DEGENERATION
     Dosage: 3 DF, QD, 01 YEAR
     Route: 065
  2. VITALUX [Suspect]
     Active Substance: MINERALS\VITAMINS
     Indication: MACULAR DEGENERATION
     Dosage: 3 DF, QD
     Route: 047
  3. NEOVIT [Concomitant]
     Indication: MACULAR DEGENERATION
     Dosage: 3 DF, QD, 06 YEARS
     Route: 065

REACTIONS (4)
  - Decreased appetite [Not Recovered/Not Resolved]
  - Renal disorder [Not Recovered/Not Resolved]
  - Pyrexia [Not Recovered/Not Resolved]
  - Lung infection [Not Recovered/Not Resolved]

NARRATIVE: CASE EVENT DATE: 201606
